FAERS Safety Report 22598507 (Version 1)
Quarter: 2023Q2

REPORT INFORMATION
  Report Type: Spontaneous
  Country: CA (occurrence: CA)
  Receive Date: 20230614
  Receipt Date: 20230614
  Transmission Date: 20230721
  Serious: Yes (Other)
  Sender: FDA-Public Use
  Company Number: CA-002147023-NVSC2023CA132271

PATIENT
  Age: 71 Year
  Sex: Female

DRUGS (2)
  1. FUROSEMIDE [Suspect]
     Active Substance: FUROSEMIDE
     Indication: Open angle glaucoma
     Dosage: UNK
     Route: 065
  2. BIMATOPROST [Suspect]
     Active Substance: BIMATOPROST
     Indication: Open angle glaucoma
     Dosage: UNK
     Route: 065

REACTIONS (11)
  - Blepharal pigmentation [Unknown]
  - Hypertrichosis [Unknown]
  - Dermatochalasis [Unknown]
  - Eye irritation [Unknown]
  - Lentigo maligna [Unknown]
  - Lid sulcus deepened [Unknown]
  - Malignant melanoma [Unknown]
  - Pigmentation disorder [Unknown]
  - Prostaglandin analogue periorbitopathy [Unknown]
  - Skin discolouration [Unknown]
  - Skin lesion [Unknown]
